FAERS Safety Report 6669718-4 (Version None)
Quarter: 2010Q2

REPORT INFORMATION
  Report Type: 
  Country: None (occurrence: None)
  Receive Date: 20100402
  Receipt Date: 20100319
  Transmission Date: 20101027
  Serious: Yes (Other)
  Sender: FDA-Public Use
  Company Number: 390001M10TUR

PATIENT
  Age: 30 Year
  Sex: Female
  Weight: 74 kg

DRUGS (2)
  1. CETROTIDE [Suspect]
     Indication: INFERTILITY
     Dosage: ONCE, SUBCUTANEOUS
     Route: 058
     Dates: start: 20100227, end: 20100227
  2. GONAL-F [Concomitant]

REACTIONS (7)
  - AMNESIA [None]
  - ANAPHYLACTIC SHOCK [None]
  - FALL [None]
  - GAZE PALSY [None]
  - IMMEDIATE POST-INJECTION REACTION [None]
  - SYNCOPE [None]
  - URINARY INCONTINENCE [None]
